FAERS Safety Report 21026782 (Version 1)
Quarter: 2022Q2

REPORT INFORMATION
  Report Type: Spontaneous
  Country: FR (occurrence: FR)
  Receive Date: 20220630
  Receipt Date: 20220630
  Transmission Date: 20220721
  Serious: Yes (Disabling, Other)
  Sender: FDA-Public Use
  Company Number: None

PATIENT
  Age: 55 Year
  Sex: Male
  Weight: 82 kg

DRUGS (8)
  1. CIPROFLOXACIN [Suspect]
     Active Substance: CIPROFLOXACIN
     Indication: Infantile septic granulomatosis
     Dosage: 1000 MG, QD
     Route: 048
     Dates: start: 2000
  2. SPORANOX [Suspect]
     Active Substance: ITRACONAZOLE
     Indication: Infantile septic granulomatosis
     Dosage: 100 MG, BID
     Route: 048
     Dates: start: 2000
  3. AMOXICILLIN\CLAVULANIC ACID [Suspect]
     Active Substance: AMOXICILLIN\CLAVULANIC ACID
     Indication: Infantile septic granulomatosis
     Dosage: 2 DF, QD
     Route: 048
     Dates: start: 2000
  4. ALLOPURINOL [Concomitant]
     Active Substance: ALLOPURINOL
     Dosage: UNK
  5. IRBESARTAN [Concomitant]
     Active Substance: IRBESARTAN
     Dosage: UNK
  6. ASPIRIN [Concomitant]
     Active Substance: ASPIRIN
     Dosage: UNK
  7. AZITHROMYCIN [Concomitant]
     Active Substance: AZITHROMYCIN
     Dosage: UNK
  8. GLYCOPYRRONIUM\INDACATEROL [Concomitant]
     Active Substance: GLYCOPYRRONIUM\INDACATEROL
     Dosage: UNK

REACTIONS (2)
  - Optic neuritis [Recovered/Resolved with Sequelae]
  - Age-related macular degeneration [Not Recovered/Not Resolved]

NARRATIVE: CASE EVENT DATE: 20181201
